FAERS Safety Report 12166894 (Version 2)
Quarter: 2016Q1

REPORT INFORMATION
  Report Type: Spontaneous
  Country: US (occurrence: US)
  Receive Date: 20160310
  Receipt Date: 20160311
  Transmission Date: 20160526
  Serious: Yes (Other)
  Sender: FDA-Public Use
  Company Number: US-AMGEN-USASP2016028425

PATIENT
  Age: 81 Year
  Sex: Female

DRUGS (1)
  1. PROLIA [Suspect]
     Active Substance: DENOSUMAB
     Indication: OSTEOPOROSIS POSTMENOPAUSAL
     Dosage: UNK
     Route: 065

REACTIONS (7)
  - Fall [Unknown]
  - Nausea [Unknown]
  - Vomiting [Unknown]
  - Cervical vertebral fracture [Recovering/Resolving]
  - Bone pain [Unknown]
  - Rash pruritic [Unknown]
  - Scratch [Unknown]

NARRATIVE: CASE EVENT DATE: 201602
